FAERS Safety Report 6599000-5 (Version None)
Quarter: 2010Q1

REPORT INFORMATION
  Report Type: 
  Country: None (occurrence: None)
  Receive Date: 20100224
  Receipt Date: 20090604
  Transmission Date: 20100710
  Serious: Yes (Other)
  Sender: FDA-Public Use
  Company Number: US-BRISTOL-MYERS SQUIBB COMPANY-14650329

PATIENT

DRUGS (1)
  1. GLUCOPHAGE [Suspect]
     Dosage: 1 DOSAGE FORM = INGESTED ABOUT 90 TABLETS

REACTIONS (1)
  - OVERDOSE [None]
